FAERS Safety Report 6642964-1 (Version None)
Quarter: 2010Q1

REPORT INFORMATION
  Report Type: 
  Country: None (occurrence: None)
  Receive Date: 20100319
  Receipt Date: 20100312
  Transmission Date: 20100710
  Serious: Yes (Congenital Anomaly)
  Sender: FDA-Public Use
  Company Number: A0680395A

PATIENT
  Sex: Male

DRUGS (3)
  1. PAXIL CR [Suspect]
     Indication: DEPRESSION
     Dates: start: 20030201, end: 20031001
  2. ZOLOFT [Suspect]
     Indication: DEPRESSION
     Dosage: 100MG PER DAY
     Dates: start: 20031001, end: 20040101
  3. VITAMIN TAB [Concomitant]

REACTIONS (3)
  - DRUG EXPOSURE DURING PREGNANCY [None]
  - EAR MALFORMATION [None]
  - SPECIAL SENSES CONGENITAL ANOMALY [None]
